FAERS Safety Report 17258313 (Version 4)
Quarter: 2020Q3

REPORT INFORMATION
  Report Type: Report from Study
  Country: US (occurrence: US)
  Receive Date: 20200110
  Receipt Date: 20200304
  Transmission Date: 20201104
  Serious: Yes (Other)
  Sender: FDA-Public Use
  Company Number: US-ROCHE-2511810

PATIENT
  Age: 47 Year
  Sex: Female
  Weight: 85.7 kg

DRUGS (14)
  1. CHOLECALCIFEROL [Concomitant]
     Active Substance: CHOLECALCIFEROL
     Dosage: DOSE: 2000 TUBERCULIN UNIT
     Route: 048
     Dates: start: 20191104
  2. ROPINIROLE. [Concomitant]
     Active Substance: ROPINIROLE
     Route: 048
     Dates: start: 20191029
  3. CEPHALEXIN [CEFALEXIN] [Concomitant]
     Active Substance: CEPHALEXIN
     Route: 048
     Dates: start: 2013, end: 20191212
  4. BTRC?4017A. [Suspect]
     Active Substance: BTRC-4017A
     Indication: NEOPLASM MALIGNANT
     Dosage: TOTAL VOLUME OF FIRST BTRC4017A ADMINISTERED 3 ML?DATE OF MOST RECENT DOSE OF BTRC4017A PRIOR TO AE
     Route: 042
     Dates: start: 20191210
  5. LORAZEPAM. [Concomitant]
     Active Substance: LORAZEPAM
     Route: 048
     Dates: start: 20191022
  6. TRASTUZUMAB. [Suspect]
     Active Substance: TRASTUZUMAB
     Indication: NEOPLASM MALIGNANT
     Dosage: DATE OF MOST RECENT DOSE OF TRASTUZUMAB PRIOR TO ADVERSE EVENT ONSET: 09/DEC/2019, TIME;11:57
     Route: 065
     Dates: start: 20191209
  7. LORATADINE. [Concomitant]
     Active Substance: LORATADINE
     Route: 048
     Dates: start: 20191104
  8. CLINDAMYCIN. [Concomitant]
     Active Substance: CLINDAMYCIN
     Route: 061
     Dates: start: 20190708, end: 20191213
  9. OLANZAPINE. [Concomitant]
     Active Substance: OLANZAPINE
     Route: 048
     Dates: start: 20190316, end: 20191207
  10. DIPHENOXYLATE/ATROPINE [Concomitant]
     Active Substance: ATROPINE\DIPHENOXYLATE
     Route: 048
     Dates: start: 20190822
  11. LEVETIRACETAM. [Concomitant]
     Active Substance: LEVETIRACETAM
     Route: 048
     Dates: start: 20180221
  12. CETIRIZINE [Concomitant]
     Active Substance: CETIRIZINE HYDROCHLORIDE
     Route: 048
     Dates: start: 20191104
  13. NORCO [Concomitant]
     Active Substance: ACETAMINOPHEN\HYDROCODONE BITARTRATE
     Route: 048
     Dates: start: 20191002
  14. LIDOCAINE;PRILOCAINE [Concomitant]
     Dosage: DOSE 1: OTHER
     Route: 061
     Dates: start: 20180321, end: 20191219

REACTIONS (1)
  - Seizure [Recovering/Resolving]

NARRATIVE: CASE EVENT DATE: 20191225
